FAERS Safety Report 5847866-6 (Version None)
Quarter: 2008Q3

REPORT INFORMATION
  Report Type: 
  Country: None (occurrence: None)
  Receive Date: 20080814
  Receipt Date: 20080814
  Transmission Date: 20090109
  Serious: Yes (Other)
  Sender: FDA-Public Use
  Company Number: None

PATIENT
  Age: 41 Year
  Sex: Female
  Weight: 57.1532 kg

DRUGS (1)
  1. VYTORIN [Suspect]
     Indication: BLOOD CHOLESTEROL INCREASED
     Dates: start: 20050101, end: 20060101

REACTIONS (6)
  - ANAEMIA [None]
  - BREAST CYST [None]
  - DYSPNOEA [None]
  - HODGKIN'S DISEASE [None]
  - OVARIAN CYST [None]
  - PAIN IN EXTREMITY [None]
